FAERS Safety Report 5636794-7 (Version None)
Quarter: 2008Q1

REPORT INFORMATION
  Report Type: 
  Country: None (occurrence: None)
  Receive Date: 20080225
  Receipt Date: 20080220
  Transmission Date: 20080703
  Serious: Yes (Hospitalization)
  Sender: FDA-Public Use
  Company Number: PT-MERCK-0802PRT00004

PATIENT
  Age: 76 Year
  Sex: Female

DRUGS (2)
  1. VYTORIN [Suspect]
     Route: 048
     Dates: start: 20071123
  2. WARFARIN [Suspect]
     Route: 065

REACTIONS (2)
  - HAEMATOCHEZIA [None]
  - HAEMATOMA [None]
